FAERS Safety Report 6324079-5 (Version None)
Quarter: 2009Q3

REPORT INFORMATION
  Report Type: 
  Country: None (occurrence: None)
  Receive Date: 20090824
  Receipt Date: 20090420
  Transmission Date: 20100115
  Serious: No
  Sender: FDA-Public Use
  Company Number: US-ABBOTT-09P-163-0569268-00

PATIENT
  Sex: Male
  Weight: 86.26 kg

DRUGS (3)
  1. NIASPAN [Suspect]
     Indication: LDL/HDL RATIO INCREASED
     Route: 048
     Dates: start: 20090401, end: 20090415
  2. TRILIPIX [Suspect]
     Indication: LDL/HDL RATIO INCREASED
     Route: 048
     Dates: start: 20090401, end: 20090415
  3. FISH OIL [Concomitant]
     Indication: DRUG USE FOR UNKNOWN INDICATION

REACTIONS (2)
  - ARTHRALGIA [None]
  - MUSCULAR WEAKNESS [None]
